FAERS Safety Report 12313015 (Version 1)
Quarter: 2016Q2

REPORT INFORMATION
  Report Type: Report from Study
  Country: CA (occurrence: CA)
  Receive Date: 20160428
  Receipt Date: 20160428
  Transmission Date: 20160815
  Serious: Yes (Disabling)
  Sender: FDA-Public Use
  Company Number: CA-ROCHE-1746761

PATIENT

DRUGS (3)
  1. RITUXIMAB [Suspect]
     Active Substance: RITUXIMAB
     Indication: B-CELL LYMPHOMA
     Route: 042
  2. BENDAMUSTINE [Suspect]
     Active Substance: BENDAMUSTINE
     Indication: B-CELL LYMPHOMA
     Dosage: DATE OF MOST RECENT DOSE: 30 APR 2014, DOSE OF MOST RECENT DOSE 196.25 MG
     Route: 042
  3. RITUXIMAB [Suspect]
     Active Substance: RITUXIMAB
     Dosage: DATE OF MOST RECENT DOSE: 18 JAN 2016, DOSE OF MOST RECENT DOSE 1.6 MG IN 500 ML VOLUME.
     Route: 042

REACTIONS (1)
  - Brachial plexopathy [Not Recovered/Not Resolved]

NARRATIVE: CASE EVENT DATE: 20160129
